FAERS Safety Report 8442465-4 (Version None)
Quarter: 2012Q2

REPORT INFORMATION
  Report Type: 
  Country: None (occurrence: None)
  Receive Date: 20120615
  Receipt Date: 20120103
  Transmission Date: 20120825
  Serious: No
  Sender: FDA-Public Use
  Company Number: US-NOVEN-12US003879

PATIENT
  Sex: Female

DRUGS (2)
  1. DAYTRANA [Suspect]
     Indication: NARCOLEPSY
     Dosage: 30 MG, UNK
     Route: 062
     Dates: start: 20120103, end: 20120103
  2. VICODIN [Concomitant]
     Indication: NECK PAIN
     Dosage: PRN
     Route: 048

REACTIONS (7)
  - MIGRAINE [None]
  - FEELING HOT [None]
  - MYALGIA [None]
  - SOMNOLENCE [None]
  - DRUG PRESCRIBING ERROR [None]
  - OFF LABEL USE [None]
  - APPLICATION SITE ERYTHEMA [None]
